FAERS Safety Report 7612781-4 (Version None)
Quarter: 2011Q3

REPORT INFORMATION
  Report Type: 
  Country: None (occurrence: None)
  Receive Date: 20110708
  Receipt Date: 20110627
  Transmission Date: 20111222
  Serious: Yes (Death)
  Sender: FDA-Public Use
  Company Number: 2011AP001310

PATIENT
  Age: 22 Year

DRUGS (3)
  1. ALPRAZOLAM [Suspect]
     Indication: PRODUCT USED FOR UNKNOWN INDICATION
     Dosage: 37 TAB; TAB;
  2. QUETIAPINE [Suspect]
     Indication: PRODUCT USED FOR UNKNOWN INDICATION
     Dosage: UNKNOWN
  3. METHADONE HCL [Suspect]
     Indication: PRODUCT USED FOR UNKNOWN INDICATION

REACTIONS (5)
  - RESPIRATORY DEPRESSION [None]
  - ACCIDENTAL POISONING [None]
  - OVERDOSE [None]
  - TOXICITY TO VARIOUS AGENTS [None]
  - SOMNOLENCE [None]
